FAERS Safety Report 17670743 (Version 1)
Quarter: 2020Q2

REPORT INFORMATION
  Report Type: Spontaneous
  Country: US (occurrence: US)
  Receive Date: 20200415
  Receipt Date: 20200415
  Transmission Date: 20200713
  Serious: No
  Sender: FDA-Public Use
  Company Number: None

PATIENT
  Age: 82 Year
  Sex: Male

DRUGS (1)
  1. NETARSUDIL (NETARSUDIL 0.02% SOLN, OPH) [Suspect]
     Active Substance: NETARSUDIL
     Indication: GLAUCOMA
     Dosage: ?          OTHER DOSE:1 DROPS;OTHER ROUTE:EYE?
     Dates: start: 20190820, end: 20200409

REACTIONS (2)
  - Erythema [None]
  - Eye irritation [None]

NARRATIVE: CASE EVENT DATE: 20200409
